FAERS Safety Report 4267829-4 (Version None)
Quarter: 2004Q1

REPORT INFORMATION
  Report Type: 
  Country: None (occurrence: None)
  Receive Date: 20040109
  Receipt Date: 20030902
  Transmission Date: 20041129
  Serious: Yes (Hospitalization)
  Sender: FDA-Public Use
  Company Number: FR-GLAXOSMITHKLINE-B0308390A

PATIENT
  Age: 54 Year
  Sex: Female

DRUGS (11)
  1. AUGMENTIN '125' [Suspect]
     Route: 048
     Dates: start: 20030618, end: 20030628
  2. DI ANTALVIC [Suspect]
     Route: 048
     Dates: start: 20030614, end: 20030704
  3. ACTONEL [Suspect]
     Dosage: 35MG SINGLE DOSE
     Route: 048
     Dates: start: 20030623, end: 20030707
  4. CORTANCYL [Concomitant]
     Dosage: 30MG PER DAY
     Route: 065
  5. SERETIDE [Concomitant]
     Route: 065
  6. OROCAL [Concomitant]
     Dosage: 2UNIT PER DAY
     Route: 065
  7. STILNOX [Concomitant]
     Dosage: 1UNIT PER DAY
     Route: 065
  8. FEROGRAD [Concomitant]
     Route: 065
  9. VICTAN [Concomitant]
     Route: 065
  10. NASACORT [Concomitant]
     Route: 065
  11. ARTISIAL [Concomitant]
     Route: 065
     Dates: start: 20030620

REACTIONS (12)
  - ALANINE AMINOTRANSFERASE INCREASED [None]
  - ANTIMITOCHONDRIAL ANTIBODY POSITIVE [None]
  - BILIARY CYST [None]
  - BLOOD ALKALINE PHOSPHATASE INCREASED [None]
  - CHOLANGITIS [None]
  - CHOLESTASIS [None]
  - EOSINOPHILIA [None]
  - GAMMA-GLUTAMYLTRANSFERASE INCREASED [None]
  - HEPATIC LESION [None]
  - HEPATITIS [None]
  - LUNG DISORDER [None]
  - PATHOGEN RESISTANCE [None]
